FAERS Safety Report 6213389-8 (Version None)
Quarter: 2009Q2

REPORT INFORMATION
  Report Type: 
  Country: None (occurrence: None)
  Receive Date: 20090603
  Receipt Date: 20090529
  Transmission Date: 20091009
  Serious: Yes (Death, Hospitalization)
  Sender: FDA-Public Use
  Company Number: PHEH2009US05582

PATIENT
  Sex: Male

DRUGS (9)
  1. EXJADE [Suspect]
     Indication: THALASSAEMIA
     Dosage: 1000 MG, QD
     Dates: start: 20070101, end: 20070101
  2. GEMFIBROZIL [Concomitant]
     Dosage: 600 MG, QD
  3. COLACE [Concomitant]
     Dosage: UNK
  4. SENNA [Concomitant]
     Dosage: UNK
  5. FOLIC ACID [Concomitant]
     Dosage: 5 MG, QD
  6. URSODIOL [Concomitant]
     Dosage: 300 MG, BID
  7. OXYCONTIN [Concomitant]
  8. PANTOPRAZOLE SODIUM [Concomitant]
     Dosage: 40 MG, QD
  9. HUMALOG [Concomitant]

REACTIONS (10)
  - ABDOMINAL PAIN [None]
  - ASCITES [None]
  - COLORECTAL CANCER METASTATIC [None]
  - DISEASE PROGRESSION [None]
  - NAUSEA [None]
  - OEDEMA PERIPHERAL [None]
  - PARACENTESIS [None]
  - PERITONITIS [None]
  - VOMITING [None]
  - WHITE BLOOD CELL COUNT INCREASED [None]
